FAERS Safety Report 4781590-6 (Version None)
Quarter: 2005Q3

REPORT INFORMATION
  Report Type: 
  Country: None (occurrence: None)
  Receive Date: 20050927
  Receipt Date: 20050914
  Transmission Date: 20060218
  Serious: Yes (Other)
  Sender: FDA-Public Use
  Company Number: 2005130693

PATIENT
  Sex: 0

DRUGS (1)
  1. PREDNISONE [Suspect]
     Indication: SYSTEMIC LUPUS ERYTHEMATOSUS
     Dosage: 0.5 MG/KG

REACTIONS (1)
  - ADULT T-CELL LYMPHOMA/LEUKAEMIA [None]
